FAERS Safety Report 4344372-5 (Version None)
Quarter: 2004Q2

REPORT INFORMATION
  Report Type: 
  Country: None (occurrence: None)
  Receive Date: 20040420
  Receipt Date: 20040409
  Transmission Date: 20050107
  Serious: Yes (Other)
  Sender: FDA-Public Use
  Company Number: 2004208262JP

PATIENT
  Age: 50 Year

DRUGS (2)
  1. CAMPTOSAR [Suspect]
     Indication: GASTRIC CANCER
     Dosage: 100 MG/M2, IV DRIP
     Route: 041
     Dates: start: 20040329, end: 20040329
  2. CISPLATIN [Suspect]
     Indication: GASTRIC CANCER
     Dosage: 80 MG/M2, IV DRIP
     Route: 041
     Dates: start: 20040329, end: 20040329

REACTIONS (3)
  - BLOOD CREATINE INCREASED [None]
  - DIARRHOEA [None]
  - LEUKOPENIA [None]
